FAERS Safety Report 8827354 (Version 1)
Quarter: 2012Q4

REPORT INFORMATION
  Report Type: 
  Country: US (occurrence: US)
  Receive Date: 20121008
  Receipt Date: 20121008
  Transmission Date: 20130627
  Serious: Yes (Hospitalization, Other)
  Sender: FDA-Public Use
  Company Number: US-JNJFOC-20121000220

PATIENT
  Age: 53 Year
  Sex: Male

DRUGS (1)
  1. PREZISTA [Suspect]
     Indication: HIV INFECTION
     Route: 048
     Dates: start: 20120816, end: 20120822

REACTIONS (1)
  - Acute hepatic failure [Recovered/Resolved]
